FAERS Safety Report 12845864 (Version 1)
Quarter: 2016Q4

REPORT INFORMATION
  Report Type: Spontaneous
  Country: MY (occurrence: MY)
  Receive Date: 20161013
  Receipt Date: 20161013
  Transmission Date: 20170207
  Serious: Yes (Other)
  Sender: FDA-Public Use
  Company Number: MY-009507513-1610MYS005013

PATIENT

DRUGS (1)
  1. KEYTRUDA [Suspect]
     Active Substance: PEMBROLIZUMAB
     Dosage: 3 WEEKLY
     Route: 042

REACTIONS (2)
  - Skin reaction [Recovering/Resolving]
  - Hypothyroidism [Recovering/Resolving]
